FAERS Safety Report 12219302 (Version 15)
Quarter: 2021Q1

REPORT INFORMATION
  Report Type: Report from Study
  Country: None (occurrence: NL)
  Receive Date: 20160329
  Receipt Date: 20210310
  Transmission Date: 20210419
  Serious: Yes (Other)
  Sender: FDA-Public Use
  Company Number: NL-ABBVIE-16P-114-1585428-00

PATIENT
  Age: 60 Year
  Sex: Female
  Weight: 75 kg

DRUGS (7)
  1. DUODOPA [Suspect]
     Active Substance: CARBIDOPA\LEVODOPA
     Dosage: MD: 10.5, CD: 4.2, ED: 2
     Route: 050
  2. SELEGILINE [Concomitant]
     Active Substance: SELEGILINE
     Indication: PARKINSON^S DISEASE
  3. DUODOPA [Suspect]
     Active Substance: CARBIDOPA\LEVODOPA
     Dosage: MD 9.0 ML, CD 3.6 ML/H ED 2.0 ML
     Route: 050
  4. DUODOPA [Suspect]
     Active Substance: CARBIDOPA\LEVODOPA
     Indication: PARKINSON^S DISEASE
     Dosage: MD: 11, CD: 4.2, ED: 2
     Route: 050
     Dates: start: 20151030
  5. DUODOPA [Suspect]
     Active Substance: CARBIDOPA\LEVODOPA
     Dosage: MD: 9.0 ML, CD: 3.6 ML/H ED: 2.0 ML
     Route: 050
     Dates: start: 20151111
  6. LEVODOPA/CARBIDOPA [Concomitant]
     Active Substance: CARBIDOPA\LEVODOPA
     Indication: PARKINSON^S DISEASE
     Dosage: LEVODOPA/CARBIDOPA RETARD?200/50 MILLIGRAM IN THE EVENING
  7. DUODOPA [Suspect]
     Active Substance: CARBIDOPA\LEVODOPA
     Dosage: MORNING DOSE: 9 CONTINUOUS DOSE: 3.6 EXTRA DOSE 2
     Route: 050

REACTIONS (39)
  - Stoma site discharge [Recovered/Resolved]
  - On and off phenomenon [Not Recovered/Not Resolved]
  - Dyskinesia [Recovered/Resolved]
  - Dyskinesia [Recovering/Resolving]
  - Hypersomnia [Not Recovered/Not Resolved]
  - Abnormal faeces [Recovered/Resolved]
  - Cognitive disorder [Not Recovered/Not Resolved]
  - Tension [Not Recovered/Not Resolved]
  - Weight increased [Not Recovered/Not Resolved]
  - Stoma site reaction [Recovered/Resolved]
  - Feeling abnormal [Not Recovered/Not Resolved]
  - Fall [Recovered/Resolved]
  - Somnolence [Recovering/Resolving]
  - Syncope [Not Recovered/Not Resolved]
  - Memory impairment [Recovered/Resolved]
  - Muscle rigidity [Not Recovered/Not Resolved]
  - Loss of personal independence in daily activities [Not Recovered/Not Resolved]
  - Stoma site inflammation [Recovered/Resolved]
  - Blood pressure abnormal [Not Recovered/Not Resolved]
  - Musculoskeletal stiffness [Not Recovered/Not Resolved]
  - Device loosening [Unknown]
  - Device issue [Not Recovered/Not Resolved]
  - Device breakage [Unknown]
  - Hypotension [Not Recovered/Not Resolved]
  - Abnormal dreams [Recovered/Resolved]
  - Tremor [Not Recovered/Not Resolved]
  - Device occlusion [Unknown]
  - Pelvic fracture [Not Recovered/Not Resolved]
  - Weight abnormal [Recovered/Resolved]
  - Fibroma [Not Recovered/Not Resolved]
  - Restlessness [Not Recovered/Not Resolved]
  - Middle insomnia [Not Recovered/Not Resolved]
  - Stress [Not Recovered/Not Resolved]
  - Stoma site discharge [Recovered/Resolved]
  - Nausea [Not Recovered/Not Resolved]
  - Memory impairment [Not Recovered/Not Resolved]
  - Fall [Not Recovered/Not Resolved]
  - Illness [Not Recovered/Not Resolved]
  - Sleep disorder [Unknown]

NARRATIVE: CASE EVENT DATE: 20160309
